FAERS Safety Report 15241218 (Version 1)
Quarter: 2018Q3

REPORT INFORMATION
  Report Type: Spontaneous
  Country: US (occurrence: US)
  Receive Date: 20180711
  Receipt Date: 20180711
  Transmission Date: 20181010
  Serious: Yes (Congenital Anomaly)
  Sender: FDA-Public Use
  Company Number: None

PATIENT
  Age: 35 Year
  Sex: Female
  Weight: 54 kg

DRUGS (2)
  1. LETROZOLE. [Suspect]
     Active Substance: LETROZOLE
     Indication: INFERTILITY FEMALE
  2. MVI [Concomitant]
     Active Substance: VITAMINS

REACTIONS (5)
  - Maternal drugs affecting foetus [None]
  - Foetal death [None]
  - Maternal exposure before pregnancy [None]
  - Abortion induced [None]
  - Chondrodystrophy [None]

NARRATIVE: CASE EVENT DATE: 20180314
